FAERS Safety Report 8528566-0 (Version None)
Quarter: 2012Q3

REPORT INFORMATION
  Report Type: 
  Country: None (occurrence: None)
  Receive Date: 20120723
  Receipt Date: 20120712
  Transmission Date: 20120928
  Serious: Yes (Hospitalization)
  Sender: FDA-Public Use
  Company Number: US-BIOGENIDEC-2012BI025659

PATIENT
  Age: 39 Year
  Sex: Female

DRUGS (2)
  1. TOPAMAX [Concomitant]
     Indication: HEADACHE
  2. TYSABRI [Suspect]
     Indication: MULTIPLE SCLEROSIS
     Route: 042
     Dates: start: 20070109

REACTIONS (3)
  - FEELING COLD [None]
  - ABDOMINAL DISCOMFORT [None]
  - CONVULSION [None]
